FAERS Safety Report 14306830 (Version 2)
Quarter: 2017Q4

REPORT INFORMATION
  Report Type: Spontaneous
  Country: BR (occurrence: BR)
  Receive Date: 20171220
  Receipt Date: 20171220
  Transmission Date: 20180321
  Serious: Yes (Death, Other)
  Sender: FDA-Public Use
  Company Number: BR-B.I. PHARMACEUTICALS,INC./RIDGEFIELD-2017-BI-067298

PATIENT
  Age: 92 Year
  Sex: Male
  Weight: 76 kg

DRUGS (5)
  1. INDAPAMIDA [Concomitant]
     Active Substance: INDAPAMIDE
     Indication: HYPERTENSION
     Route: 048
  2. THIAMINE. [Concomitant]
     Active Substance: THIAMINE
     Indication: NEUROPATHY PERIPHERAL
     Route: 048
  3. PRAXBIND [Suspect]
     Active Substance: IDARUCIZUMAB
     Indication: PRODUCT USED FOR UNKNOWN INDICATION
     Route: 065
     Dates: start: 20171215
  4. CARVEDILOL. [Concomitant]
     Active Substance: CARVEDILOL
     Indication: CONGESTIVE CARDIOMYOPATHY
     Route: 065
  5. PREBICTAL [Concomitant]
     Active Substance: PREGABALIN
     Indication: NEUROPATHY PERIPHERAL
     Route: 048

REACTIONS (5)
  - Cardio-respiratory arrest [Fatal]
  - Cardio-respiratory arrest [Recovered/Resolved]
  - Hypotension [Unknown]
  - Shock [Fatal]
  - Hypoxia [Unknown]

NARRATIVE: CASE EVENT DATE: 20171216
